FAERS Safety Report 6318709-1 (Version None)
Quarter: 2009Q3

REPORT INFORMATION
  Report Type: 
  Country: None (occurrence: None)
  Receive Date: 20090821
  Receipt Date: 20090811
  Transmission Date: 20100115
  Serious: Yes (Hospitalization, Other)
  Sender: FDA-Public Use
  Company Number: SE-AMGEN-QUU333122

PATIENT
  Sex: Female

DRUGS (7)
  1. NEUPOGEN [Suspect]
     Indication: DRUG USE FOR UNKNOWN INDICATION
  2. SODIUM PICOSULFATE [Concomitant]
     Route: 048
  3. ENALAPRIL MALEATE [Concomitant]
  4. ASPIRIN [Concomitant]
  5. ALVEDON [Concomitant]
  6. TEGRETOL [Concomitant]
  7. CITALOPRAM HYDROBROMIDE [Concomitant]

REACTIONS (4)
  - C-REACTIVE PROTEIN INCREASED [None]
  - LEUKOPENIA [None]
  - PYREXIA [None]
  - VIRAL INFECTION [None]
